FAERS Safety Report 14358383 (Version 3)
Quarter: 2018Q4

REPORT INFORMATION
  Report Type: Spontaneous
  Country: US (occurrence: US)
  Receive Date: 20180105
  Receipt Date: 20181009
  Transmission Date: 20190204
  Serious: No
  Sender: FDA-Public Use
  Company Number: US-SA-2017SA208159

PATIENT
  Age: 54 Year
  Sex: Male

DRUGS (6)
  1. DUPIXENT [Suspect]
     Active Substance: DUPILUMAB
     Dosage: 300 MG,QOW
     Route: 058
  2. LISINOPRIL. [Concomitant]
     Active Substance: LISINOPRIL
  3. FLUOCINONIDE. [Concomitant]
     Active Substance: FLUOCINONIDE
  4. DUPIXENT [Suspect]
     Active Substance: DUPILUMAB
     Indication: DERMATITIS ATOPIC
     Dosage: 600 MG,1X
     Route: 058
     Dates: start: 20170914, end: 20170914
  5. METFORMIN [Concomitant]
     Active Substance: METFORMIN HYDROCHLORIDE
     Dosage: UNK
  6. ATORVASTATIN CALCIUM. [Concomitant]
     Active Substance: ATORVASTATIN CALCIUM

REACTIONS (7)
  - Skin lesion [Recovering/Resolving]
  - Toxicity to various agents [Not Recovered/Not Resolved]
  - Injection site irritation [Unknown]
  - Injection site discolouration [Recovered/Resolved]
  - Inflammation [Recovered/Resolved]
  - Bronchitis [Unknown]
  - Injection site bruising [Recovered/Resolved]
